FAERS Safety Report 9927437 (Version 3)
Quarter: 2014Q2

REPORT INFORMATION
  Report Type: Spontaneous
  Country: US (occurrence: US)
  Receive Date: 20140227
  Receipt Date: 20140609
  Transmission Date: 20141212
  Serious: Yes (Other)
  Sender: FDA-Public Use
  Company Number: US-AMGEN-USASP2014006742

PATIENT
  Age: 41 Year
  Sex: Female
  Weight: 58.96 kg

DRUGS (2)
  1. ENBREL [Suspect]
     Indication: RHEUMATOID ARTHRITIS
     Dosage: 50 MG, QWK
     Route: 065
     Dates: start: 20131023
  2. PRENATAL VITAMINS                  /07499601/ [Concomitant]
     Dosage: UNK UNK, QD
     Dates: start: 20140127

REACTIONS (3)
  - Haemorrhage in pregnancy [Unknown]
  - Cytogenetic abnormality [Unknown]
  - Abortion spontaneous [Unknown]
